FAERS Safety Report 12350983 (Version 1)
Quarter: 2016Q2

REPORT INFORMATION
  Report Type: Spontaneous
  Country: US (occurrence: None)
  Receive Date: 20160509
  Receipt Date: 20160509
  Transmission Date: 20160815
  Serious: No
  Sender: FDA-Public Use
  Company Number: None

PATIENT
  Sex: Male

DRUGS (1)
  1. HUMIRA [Suspect]
     Active Substance: ADALIMUMAB
     Indication: COLITIS
     Dosage: 40MG EVERY OTHER WEEK
     Route: 058
     Dates: start: 20121228

REACTIONS (3)
  - Therapy cessation [None]
  - Wound infection [None]
  - Wound [None]
